FAERS Safety Report 24774476 (Version 2)
Quarter: 2025Q1

REPORT INFORMATION
  Report Type: Report from Study
  Country: US (occurrence: US)
  Receive Date: 20241225
  Receipt Date: 20250107
  Transmission Date: 20250409
  Serious: Yes (Hospitalization, Other)
  Sender: ABBVIE
  Company Number: US-ABBVIE-6060875

PATIENT
  Age: 66 Year
  Sex: Female
  Weight: 61.234 kg

DRUGS (3)
  1. HUMIRA [Suspect]
     Active Substance: ADALIMUMAB
     Indication: Crohn^s disease
     Dosage: CITRATE FREE  FORM STRENGTH: 40MG
     Route: 058
     Dates: start: 20190113, end: 20241106
  2. SYNTHROID [Concomitant]
     Active Substance: LEVOTHYROXINE SODIUM
     Indication: Hypothyroidism
  3. ZETIA [Concomitant]
     Active Substance: EZETIMIBE
     Indication: Blood cholesterol

REACTIONS (7)
  - Systemic lupus erythematosus [Recovering/Resolving]
  - Drug hypersensitivity [Unknown]
  - Deep vein thrombosis [Not Recovered/Not Resolved]
  - Lymphadenopathy [Recovered/Resolved]
  - Mouth ulceration [Recovered/Resolved]
  - Pyrexia [Not Recovered/Not Resolved]
  - Arthralgia [Recovered/Resolved]

NARRATIVE: CASE EVENT DATE: 20230101
